FAERS Safety Report 15070262 (Version 1)
Quarter: 2018Q2

REPORT INFORMATION
  Report Type: Report from Study
  Country: NO (occurrence: NO)
  Receive Date: 20180626
  Receipt Date: 20180626
  Transmission Date: 20180711
  Serious: Yes (Other)
  Sender: FDA-Public Use
  Company Number: NO-ROCHE-2103519

PATIENT
  Age: 63 Year
  Sex: Male
  Weight: 86.8 kg

DRUGS (12)
  1. APIXABAN [Concomitant]
     Active Substance: APIXABAN
     Route: 048
     Dates: start: 20180319
  2. LOPERAMID [Concomitant]
     Active Substance: LOPERAMIDE
     Indication: DIARRHOEA
     Route: 048
     Dates: start: 20180122
  3. APIXABAN [Concomitant]
     Active Substance: APIXABAN
     Indication: DEEP VEIN THROMBOSIS
     Route: 048
     Dates: end: 201710
  4. CALCIGRAN FORTE [Concomitant]
     Active Substance: CALCIUM CARBONATE\CHOLECALCIFEROL
     Indication: PLASMA CELL MYELOMA
     Route: 048
  5. ZOMETA [Concomitant]
     Active Substance: ZOLEDRONIC ACID
     Indication: PLASMA CELL MYELOMA
     Route: 042
  6. BRONKYL [Concomitant]
     Indication: PRODUCTIVE COUGH
     Route: 048
     Dates: start: 20180205
  7. COBIMETINIB. [Suspect]
     Active Substance: COBIMETINIB
     Indication: PLASMA CELL MYELOMA
     Dosage: DATE OF MOST RECENT DOSE OF COBIMETINIB OF 40 MG PRIOR TO SAE (FIRST OCCURRENCE OF NEUTROPENIA) ONSE
     Route: 048
     Dates: start: 20180122
  8. VENETOCLAX. [Suspect]
     Active Substance: VENETOCLAX
     Indication: PLASMA CELL MYELOMA
     Dosage: MOST RECENT DOSE OF VENETOCLAX (800 MG) PRIOR TO SAE (FIRST OCCURRENCE OF NEUTROPENIA) ON 02/APR/201
     Route: 048
     Dates: start: 20180122
  9. ZOFRAN [Concomitant]
     Active Substance: ONDANSETRON HYDROCHLORIDE
     Indication: NAUSEA
     Route: 048
     Dates: start: 20180122
  10. TERRAMYCINE + POLYMYXINE B [Concomitant]
     Route: 047
     Dates: start: 20180219
  11. ZOVIRAX [Concomitant]
     Active Substance: ACYCLOVIR
     Indication: ORAL HERPES
     Dosage: 1 (UNIT NOT PROVIDED)
     Route: 061
     Dates: start: 20180308, end: 20180314
  12. ATEZOLIZUMAB. [Suspect]
     Active Substance: ATEZOLIZUMAB
     Indication: PLASMA CELL MYELOMA
     Dosage: DATE OF MOST RECENT DOSE OF ATEZOLIZUMAB OF 840 MG PRIOR TO SAE (FIRST OCCURRENCE OF NEUTROPENIA) ON
     Route: 042
     Dates: start: 20180122

REACTIONS (2)
  - Neutropenia [Recovering/Resolving]
  - Neutropenia [Recovered/Resolved]

NARRATIVE: CASE EVENT DATE: 20180403
